FAERS Safety Report 5812261-2 (Version None)
Quarter: 2008Q3

REPORT INFORMATION
  Report Type: 
  Country: None (occurrence: None)
  Receive Date: 20080711
  Receipt Date: 20080630
  Transmission Date: 20090109
  Serious: Yes (Other)
  Sender: FDA-Public Use
  Company Number: US-GDP-08404185

PATIENT
  Sex: Female

DRUGS (1)
  1. PLIAGLIS (LIDOCAINE ) (TETRACAINE) [Suspect]
     Indication: DRUG USE FOR UNKNOWN INDICATION
     Dosage: (1 DF TOPICAL)
     Route: 061

REACTIONS (2)
  - ANAPHYLACTIC SHOCK [None]
  - POST PROCEDURAL COMPLICATION [None]
